FAERS Safety Report 5722363-7 (Version None)
Quarter: 2008Q2

REPORT INFORMATION
  Report Type: 
  Country: None (occurrence: None)
  Receive Date: 20080429
  Receipt Date: 20070712
  Transmission Date: 20081010
  Serious: No
  Sender: FDA-Public Use
  Company Number: US-ASTRAZENECA-2007UW16392

PATIENT
  Age: 67 Year
  Sex: Male
  Weight: 82.6 kg

DRUGS (4)
  1. NEXIUM [Suspect]
     Indication: GASTROOESOPHAGEAL REFLUX DISEASE
     Dosage: 90 COUNT BOTTLE
     Route: 048
  2. COUMADIN [Concomitant]
  3. VYTORIN [Concomitant]
  4. OMACOR [Concomitant]

REACTIONS (1)
  - ILL-DEFINED DISORDER [None]
